FAERS Safety Report 11181075 (Version 1)
Quarter: 2015Q2

REPORT INFORMATION
  Report Type: Spontaneous
  Country: US (occurrence: None)
  Receive Date: 20150610
  Receipt Date: 20150610
  Transmission Date: 20150821
  Serious: Yes (Hospitalization)
  Sender: FDA-Public Use
  Company Number: None

PATIENT
  Age: 66 Year
  Sex: Male
  Weight: 71.03 kg

DRUGS (2)
  1. ABRAXANE [Suspect]
     Active Substance: PACLITAXEL
     Dosage: Q2WEEKS IV X 8 CYCLES
     Dates: start: 20150130, end: 20150521
  2. FOLFOX [Suspect]
     Active Substance: FLUOROURACIL\LEUCOVORIN CALCIUM\OXALIPLATIN
     Indication: PANCREATIC CARCINOMA
     Dosage: Q2WEEKS IV X 8 CYCLES
     Route: 042
     Dates: start: 20150130, end: 20150521

REACTIONS (4)
  - Lymphadenopathy mediastinal [None]
  - Atrial flutter [None]
  - Pulmonary embolism [None]
  - Chronic obstructive pulmonary disease [None]

NARRATIVE: CASE EVENT DATE: 20150603
